FAERS Safety Report 11295905 (Version 3)
Quarter: 2015Q3

REPORT INFORMATION
  Report Type: Spontaneous
  Country: US (occurrence: US)
  Receive Date: 20150722
  Receipt Date: 20150916
  Transmission Date: 20151125
  Serious: No
  Sender: FDA-Public Use
  Company Number: US-ELI_LILLY_AND_COMPANY-US200909004914

PATIENT
  Sex: Female

DRUGS (8)
  1. EVISTA [Suspect]
     Active Substance: RALOXIFENE HYDROCHLORIDE
     Indication: OSTEOPENIA
     Dates: end: 200906
  2. VITAMIN D [Concomitant]
     Active Substance: CHOLECALCIFEROL
  3. LANTUS [Concomitant]
     Active Substance: INSULIN GLARGINE
     Dosage: 30 U, EACH EVENING
  4. TENORMIN [Concomitant]
     Active Substance: ATENOLOL
  5. HUMALOG [Suspect]
     Active Substance: INSULIN LISPRO
     Dosage: UNK, 3/D
  6. CALCIUM W/VITAMIN D /00188401/ [Concomitant]
  7. DIOVAN [Concomitant]
     Active Substance: VALSARTAN
  8. FORTEO [Suspect]
     Active Substance: TERIPARATIDE
     Indication: OSTEOPOROSIS
     Dates: start: 200906

REACTIONS (8)
  - Blood calcium increased [Unknown]
  - Cataract [Not Recovered/Not Resolved]
  - Osteoporosis [Not Recovered/Not Resolved]
  - Pain in extremity [Not Recovered/Not Resolved]
  - Vomiting [Recovered/Resolved]
  - Blood pressure inadequately controlled [Unknown]
  - Pain in extremity [Recovered/Resolved]
  - Insomnia [Recovered/Resolved]

NARRATIVE: CASE EVENT DATE: 200906
